FAERS Safety Report 7354453-X (Version None)
Quarter: 2011Q1

REPORT INFORMATION
  Report Type: 
  Country: None (occurrence: None)
  Receive Date: 20110316
  Receipt Date: 20110223
  Transmission Date: 20110831
  Serious: Yes (Hospitalization, Other)
  Sender: FDA-Public Use
  Company Number: US-BAYER-201039332NA

PATIENT
  Sex: Female
  Weight: 122 kg

DRUGS (7)
  1. CEFADROXIL [Concomitant]
  2. YASMIN [Suspect]
     Route: 048
     Dates: start: 20070215, end: 20071031
  3. UNCODEABLE ^UNCLASSIFIABLE^ [Concomitant]
  4. UNCODEABLE ^UNCLASSIFIABLE^ [Concomitant]
  5. CEFOXITIN [Concomitant]
  6. YASMIN [Suspect]
     Indication: ORAL CONTRACEPTION
     Route: 048
     Dates: start: 20041004, end: 20050823
  7. NUVARING [Concomitant]

REACTIONS (2)
  - CHOLECYSTECTOMY [None]
  - CHOLECYSTITIS [None]
